FAERS Safety Report 6250291-X (Version None)
Quarter: 2009Q2

REPORT INFORMATION
  Report Type: 
  Country: None (occurrence: None)
  Receive Date: 20090626
  Receipt Date: 20090626
  Transmission Date: 20091009
  Serious: Yes (Other)
  Sender: FDA-Public Use
  Company Number: None

PATIENT
  Sex: Female
  Weight: 57.6068 kg

DRUGS (3)
  1. GENERIC PHENYTOIN 100MG CAPS [Suspect]
     Indication: EPILEPSY
     Dosage: 350 MG/DAY PO
     Route: 048
  2. PRIMIDONE [Concomitant]
  3. MYSOLINE [Concomitant]

REACTIONS (2)
  - CONVULSION [None]
  - PRODUCT SUBSTITUTION ISSUE [None]
